FAERS Safety Report 11711739 (Version 1)
Quarter: 2015Q4

REPORT INFORMATION
  Report Type: Spontaneous
  Country: US (occurrence: US)
  Receive Date: 20151104
  Receipt Date: 20151104
  Transmission Date: 20160304
  Serious: No
  Sender: FDA-Public Use
  Company Number: US-ELI_LILLY_AND_COMPANY-US201106002667

PATIENT
  Age: 67 Year
  Sex: Female

DRUGS (8)
  1. FORTEO [Suspect]
     Active Substance: TERIPARATIDE
     Dosage: 20 UG, UNK
     Dates: start: 20110416, end: 20110418
  2. METHADONE [Concomitant]
     Active Substance: METHADONE HYDROCHLORIDE
     Indication: PAIN
     Dosage: 45 MG, UNK
     Route: 048
  3. ANALGESICS [Concomitant]
     Active Substance: UNSPECIFIED INGREDIENT
     Indication: PAIN
  4. ACTONEL [Concomitant]
     Active Substance: RISEDRONATE SODIUM
  5. PREDNISON [Concomitant]
     Active Substance: PREDNISONE
  6. DILAUDID [Concomitant]
     Active Substance: HYDROMORPHONE HYDROCHLORIDE
     Indication: PAIN
  7. FORTEO [Suspect]
     Active Substance: TERIPARATIDE
     Dosage: 20 UG, UNK
     Dates: start: 20110516
  8. COUMADIN [Concomitant]
     Active Substance: WARFARIN SODIUM

REACTIONS (11)
  - Gait disturbance [Unknown]
  - Systemic lupus erythematosus [Unknown]
  - Pain [Unknown]
  - Insomnia [Unknown]
  - Night sweats [Unknown]
  - Drug hypersensitivity [Unknown]
  - Adverse event [Unknown]
  - Hyperhidrosis [Unknown]
  - Headache [Not Recovered/Not Resolved]
  - Dizziness [Unknown]
  - Arthritis [Unknown]

NARRATIVE: CASE EVENT DATE: 20110425
